FAERS Safety Report 4450132-7 (Version None)
Quarter: 2004Q3

REPORT INFORMATION
  Report Type: 
  Country: None (occurrence: None)
  Receive Date: 20040915
  Receipt Date: 20040907
  Transmission Date: 20050211
  Serious: Yes (Other)
  Sender: FDA-Public Use
  Company Number: PHEH2004US09695

PATIENT
  Age: 69 Year
  Sex: Male

DRUGS (25)
  1. AREDIA [Suspect]
     Dosage: 90 MG, Q2MO
     Route: 042
     Dates: start: 19980101
  2. IODINE [Concomitant]
  3. LOPRESSOR [Concomitant]
  4. HYTRIN [Concomitant]
  5. CALCIUM W/VITAMIN D NOS [Concomitant]
  6. PRAVACHOL [Concomitant]
  7. PRILOSEC [Concomitant]
  8. SYNTHROID [Concomitant]
  9. NEURONTIN [Concomitant]
  10. FLOMAX [Concomitant]
  11. INNOHEP [Concomitant]
  12. GM-CSF [Concomitant]
  13. ARANESP [Concomitant]
  14. ACCUTANE [Concomitant]
  15. PEGINTRON ^ESSEX CHEMIE^ [Concomitant]
  16. COZAAR [Concomitant]
  17. PRINIVIL [Concomitant]
  18. NORVASC [Concomitant]
  19. LUPRON [Concomitant]
  20. PROSCAR [Concomitant]
  21. FLUTAMIDE [Concomitant]
  22. TAXOTERE [Concomitant]
  23. EMCYT [Concomitant]
  24. CARBOPLATIN [Concomitant]
  25. THALIDOMIDE [Concomitant]

REACTIONS (3)
  - BONE DISORDER [None]
  - CHRONIC SINUSITIS [None]
  - TOOTH EXTRACTION [None]
